FAERS Safety Report 7108602 (Version 2)
Quarter: 2019Q1

REPORT INFORMATION
  Report Type: Spontaneous
  Country: GB (occurrence: GB)
  Receive Date: 20090909
  Receipt Date: 20190226
  Transmission Date: 20190418
  Serious: Yes (Disabling)
  Sender: FDA-Public Use
  Company Number: GB-PFIZER INC-2009260407

PATIENT
  Age: 38 Year
  Sex: Female

DRUGS (2)
  1. PRIADEL [Concomitant]
     Active Substance: LITHIUM
     Indication: PSYCHOTIC DISORDER
     Dosage: 200 MG, UNK
     Route: 048
     Dates: start: 20080721
  2. CHAMPIX [Suspect]
     Active Substance: VARENICLINE TARTRATE
     Indication: SMOKING CESSATION THERAPY
     Dosage: 1.5 MG, UNK
     Route: 048
     Dates: start: 20080807

REACTIONS (3)
  - Tachyphrenia [Recovered/Resolved]
  - Intentional overdose [Recovered/Resolved]
  - Psychotic disorder [Recovered/Resolved]
